FAERS Safety Report 10133279 (Version 1)
Quarter: 2014Q2

REPORT INFORMATION
  Report Type: Spontaneous
  Country: ES (occurrence: ES)
  Receive Date: 20140428
  Receipt Date: 20140428
  Transmission Date: 20141212
  Serious: Yes (Life-Threatening, Hospitalization, Disabling)
  Sender: FDA-Public Use
  Company Number: ES-B.I. PHARMACEUTICALS,INC./RIDGEFIELD-2014-BI-18556ES

PATIENT
  Age: 75 Year
  Sex: Female

DRUGS (5)
  1. PRADAXA [Suspect]
     Indication: ATRIAL FIBRILLATION
     Dosage: 220 MG
     Route: 048
     Dates: start: 20130426, end: 20131215
  2. DEPAKINE 500MG [Concomitant]
     Indication: PRODUCT USED FOR UNKNOWN INDICATION
     Dosage: 500 MG
     Route: 048
     Dates: start: 20130924
  3. NOVOMIX 30 FLEXPEN 100 U/ML [Concomitant]
     Indication: DIABETES MELLITUS
     Dosage: 24 U
     Route: 058
     Dates: start: 20120924
  4. SIMVASTATINA ALTER 40 MG [Concomitant]
     Indication: HYPERLIPIDAEMIA
     Dosage: 40 MG
     Route: 048
     Dates: start: 20120924, end: 20131215
  5. TRANGOREX 200 MG [Concomitant]
     Indication: ATRIAL FIBRILLATION
     Dosage: 200 MG
     Route: 048
     Dates: start: 20130426

REACTIONS (1)
  - Cerebral infarction [Recovered/Resolved with Sequelae]
